FAERS Safety Report 7676745-7 (Version None)
Quarter: 2011Q3

REPORT INFORMATION
  Report Type: 
  Country: None (occurrence: None)
  Receive Date: 20110811
  Receipt Date: 20110809
  Transmission Date: 20111222
  Serious: Yes (Death, Other)
  Sender: FDA-Public Use
  Company Number: DK-TEVA-295565ISR

PATIENT
  Age: 85 Year

DRUGS (4)
  1. AMLODIPINE [Suspect]
     Route: 065
  2. PROPRANOLOL [Suspect]
  3. BROMAZEPAM [Suspect]
  4. NITRAZEPAM [Suspect]

REACTIONS (2)
  - DEATH [None]
  - TOXICITY TO VARIOUS AGENTS [None]
